FAERS Safety Report 5826416-4 (Version None)
Quarter: 2008Q3

REPORT INFORMATION
  Report Type: 
  Country: None (occurrence: None)
  Receive Date: 20080729
  Receipt Date: 20080721
  Transmission Date: 20090109
  Serious: Yes (Life-Threatening, Hospitalization)
  Sender: FDA-Public Use
  Company Number: CA-BOEHRINGER INGELHEIM GMBH, GERMANY-2008-CN-00351CN

PATIENT
  Sex: Male
  Weight: 93.2 kg

DRUGS (7)
  1. SPIRIVA [Suspect]
     Indication: CHRONIC OBSTRUCTIVE PULMONARY DISEASE
     Route: 055
     Dates: start: 20030727, end: 20030806
  2. ATIVAN [Concomitant]
     Route: 048
     Dates: start: 20030307
  3. LASIX [Concomitant]
     Route: 048
     Dates: start: 20030315
  4. INHIBACE [Concomitant]
     Route: 048
     Dates: start: 20010323
  5. ATASOL [Concomitant]
     Route: 048
     Dates: start: 20020723
  6. CARDIZEM CD [Concomitant]
     Route: 048
     Dates: start: 20020526
  7. COUMADIN [Concomitant]
     Route: 048
     Dates: start: 20020806

REACTIONS (2)
  - ATRIAL FLUTTER [None]
  - TACHYCARDIA [None]
